FAERS Safety Report 7776074-7 (Version None)
Quarter: 2011Q3

REPORT INFORMATION
  Report Type: 
  Country: None (occurrence: None)
  Receive Date: 20110925
  Receipt Date: 20110919
  Transmission Date: 20111222
  Serious: Yes (Death, Hospitalization, Other)
  Sender: FDA-Public Use
  Company Number: GR-AMGEN-GRCSP2011006207

PATIENT
  Age: 55 Year
  Sex: Male

DRUGS (2)
  1. NPLATE [Suspect]
     Indication: IDIOPATHIC THROMBOCYTOPENIC PURPURA
  2. CORTISONE ACETATE [Concomitant]

REACTIONS (4)
  - INFECTION [None]
  - THROMBOTIC THROMBOCYTOPENIC PURPURA [None]
  - DEEP VEIN THROMBOSIS [None]
  - SEPTIC SHOCK [None]
